FAERS Safety Report 13688587 (Version 1)
Quarter: 2017Q2

REPORT INFORMATION
  Report Type: Spontaneous
  Country: US (occurrence: US)
  Receive Date: 20170623
  Receipt Date: 20170623
  Transmission Date: 20170830
  Serious: Yes (Other)
  Sender: FDA-Public Use
  Company Number: None

PATIENT
  Age: 57 Year
  Sex: Female
  Weight: 99 kg

DRUGS (12)
  1. FRESHKOTE [Concomitant]
     Active Substance: POLYVINYL ALCOHOL\POVIDONE
  2. STELARA [Suspect]
     Active Substance: USTEKINUMAB
     Indication: PSORIASIS
     Dosage: ?          QUANTITY:1 IV INFUSION;OTHER FREQUENCY:ONE TIME;OTHER ROUTE:IV INFUSION?
     Route: 042
     Dates: start: 20170317
  3. VENLAFAXINE [Concomitant]
     Active Substance: VENLAFAXINE HYDROCHLORIDE
  4. VITAMIN D3 [Concomitant]
     Active Substance: CHOLECALCIFEROL
  5. CLOBETASOL [Concomitant]
     Active Substance: CLOBETASOL
  6. CLONAZEPAM. [Concomitant]
     Active Substance: CLONAZEPAM
  7. CYANOCABALAMIN [Concomitant]
  8. STELARA [Suspect]
     Active Substance: USTEKINUMAB
     Indication: CROHN^S DISEASE
     Dosage: ?          QUANTITY:1 IV INFUSION;OTHER FREQUENCY:ONE TIME;OTHER ROUTE:IV INFUSION?
     Route: 042
     Dates: start: 20170317
  9. ATENOLOL. [Concomitant]
     Active Substance: ATENOLOL
  10. RANITIDINE. [Concomitant]
     Active Substance: RANITIDINE
  11. AUTO-PAP [Concomitant]
  12. OMEGA 3 FISH OIL [Concomitant]
     Active Substance: FISH OIL\OMEGA-3 FATTY ACIDS

REACTIONS (3)
  - Ear pain [None]
  - External ear disorder [None]
  - Ear swelling [None]

NARRATIVE: CASE EVENT DATE: 20170418
